FAERS Safety Report 22157062 (Version 1)
Quarter: 2023Q1

REPORT INFORMATION
  Report Type: Report from Study
  Country: GB (occurrence: GB)
  Receive Date: 20230330
  Receipt Date: 20230330
  Transmission Date: 20230418
  Serious: Yes (Other)
  Sender: FDA-Public Use
  Company Number: GB-KYOWAKIRIN-2022BKK019341

PATIENT

DRUGS (2)
  1. BUROSUMAB [Suspect]
     Active Substance: BUROSUMAB
     Indication: Product used for unknown indication
     Dosage: UNK
     Route: 058
     Dates: start: 20200909
  2. BUROSUMAB [Suspect]
     Active Substance: BUROSUMAB
     Dosage: UNK
     Route: 058
     Dates: start: 20230308

REACTIONS (2)
  - Nephrocalcinosis [Not Recovered/Not Resolved]
  - Urine analysis abnormal [Recovered/Resolved]

NARRATIVE: CASE EVENT DATE: 20201123
